FAERS Safety Report 19823758 (Version 1)
Quarter: 2021Q3

REPORT INFORMATION
  Report Type: Report from Study
  Country: DE (occurrence: DE)
  Receive Date: 20210913
  Receipt Date: 20210913
  Transmission Date: 20211014
  Serious: Yes (Life-Threatening, Hospitalization, Other)
  Sender: FDA-Public Use
  Company Number: DE-CELGENEUS-DEU-20210809393

PATIENT
  Age: 62 Year
  Sex: Male
  Weight: 80 kg

DRUGS (55)
  1. REVLIMID [Suspect]
     Active Substance: LENALIDOMIDE
     Indication: PLASMA CELL MYELOMA
     Route: 048
     Dates: start: 20190401, end: 20191013
  2. REVLIMID [Suspect]
     Active Substance: LENALIDOMIDE
     Route: 048
     Dates: start: 20201012, end: 20210328
  3. CARFILZOMIB [Suspect]
     Active Substance: CARFILZOMIB
     Route: 041
     Dates: start: 20190408, end: 20210806
  4. DIMETINDENE [Concomitant]
     Active Substance: DIMETHINDENE
     Indication: PRODUCT USED FOR UNKNOWN INDICATION
     Dosage: 4 MILLIGRAM
     Route: 041
     Dates: start: 20200615, end: 20210722
  5. PARACETAMOL [Concomitant]
     Active Substance: ACETAMINOPHEN
     Dosage: 1000 MG PRN
     Route: 041
     Dates: start: 20210831
  6. RANITIDINE. [Concomitant]
     Active Substance: RANITIDINE
     Indication: PRODUCT USED FOR UNKNOWN INDICATION
     Dosage: 50 MILLIGRAM
     Route: 041
     Dates: start: 20200615, end: 20200722
  7. ACYCLOVIR. [Concomitant]
     Active Substance: ACYCLOVIR
     Indication: NEUTROPENIA
     Dosage: 400 MILLIGRAM
     Route: 048
     Dates: start: 20210810, end: 20210816
  8. CIPROFLOXACIN. [Concomitant]
     Active Substance: CIPROFLOXACIN
     Indication: INFECTION PROPHYLAXIS
     Dosage: 500 MILLIGRAM
     Route: 048
     Dates: start: 20210901
  9. JONOSTERIL [Concomitant]
     Dosage: 1000 ML OO
     Route: 041
     Dates: start: 20210831, end: 20210831
  10. TINZAPARIN [Concomitant]
     Active Substance: TINZAPARIN
     Indication: THROMBOSIS PROPHYLAXIS
     Dosage: 3500 IU (INTERNATIONAL UNIT)
     Route: 058
     Dates: start: 20210830, end: 20210830
  11. CYTARABIN [Concomitant]
     Active Substance: CYTARABINE
     Indication: ACUTE MYELOID LEUKAEMIA
     Dosage: 100 MG QD D1?3
     Route: 041
     Dates: start: 20210831, end: 20210902
  12. ELOTUZUMAB. [Suspect]
     Active Substance: ELOTUZUMAB
     Indication: PLASMA CELL MYELOMA
     Route: 041
     Dates: start: 20190401, end: 20190805
  13. DEXAMETHASONE. [Suspect]
     Active Substance: DEXAMETHASONE
     Route: 048
     Dates: start: 20200224, end: 20200601
  14. ACYCLOVIR. [Concomitant]
     Active Substance: ACYCLOVIR
     Indication: INFECTION PROPHYLAXIS
     Dosage: 800 MILLIGRAM
     Route: 048
     Dates: start: 20210901
  15. CIPROFLOXACIN. [Concomitant]
     Active Substance: CIPROFLOXACIN
     Indication: NEUTROPENIA
     Dosage: 50 MILLIGRAM
     Route: 048
     Dates: start: 20210810, end: 20210830
  16. FOLISURE [Concomitant]
     Indication: PROPHYLAXIS
     Dosage: 5 MILLIGRAM
     Route: 048
     Dates: start: 20210813
  17. VITAMIN B12 [Concomitant]
     Active Substance: CYANOCOBALAMIN
     Indication: VITAMIN B12 DEFICIENCY
     Dosage: 1000 IU (INTERNATIONAL UNIT)
     Route: 058
     Dates: start: 20210813, end: 20210817
  18. JONOSTERIL [Concomitant]
     Indication: PANCYTOPENIA
     Dosage: 500 ML OO
     Route: 041
     Dates: start: 20210820, end: 20210820
  19. NACL 0.9% [Concomitant]
     Active Substance: SODIUM CHLORIDE
     Indication: FLUID REPLACEMENT
     Dosage: 1000 MILLIGRAM
     Route: 041
     Dates: start: 20210831, end: 20210902
  20. KONAKION [Concomitant]
     Active Substance: PHYTONADIONE
     Indication: VITAMIN K DEFICIENCY
     Dosage: 10 MG 00
     Route: 041
     Dates: start: 20210831, end: 20210831
  21. BLEMAREN [Concomitant]
     Indication: RENAL FAILURE
     Dosage: 1 BTA
     Route: 048
     Dates: start: 20210901
  22. REVLIMID [Suspect]
     Active Substance: LENALIDOMIDE
     Route: 048
     Dates: start: 20200615, end: 20201011
  23. CARFILZOMIB [Suspect]
     Active Substance: CARFILZOMIB
     Indication: PLASMA CELL MYELOMA
     Route: 041
     Dates: start: 20190401, end: 20190402
  24. CARFILZOMIB [Suspect]
     Active Substance: CARFILZOMIB
     Route: 041
     Dates: start: 20190923, end: 20191001
  25. DEXAMETHASONE. [Suspect]
     Active Substance: DEXAMETHASONE
     Indication: PLASMA CELL MYELOMA
     Route: 048
     Dates: start: 20190401, end: 20210722
  26. PREGABALIN. [Concomitant]
     Active Substance: PREGABALIN
     Indication: BACK PAIN
     Dosage: 25 MILLIGRAM
     Route: 048
     Dates: start: 20200316
  27. FILGRASTIM [Concomitant]
     Active Substance: FILGRASTIM
     Indication: NEUTROPENIA
     Dosage: 48 MBO IE 00
     Route: 058
     Dates: start: 20210813, end: 20210813
  28. REVLIMID [Suspect]
     Active Substance: LENALIDOMIDE
     Route: 048
     Dates: start: 20200217, end: 20200306
  29. ELOTUZUMAB. [Suspect]
     Active Substance: ELOTUZUMAB
     Route: 041
     Dates: start: 20190819, end: 20191001
  30. ELOTUZUMAB. [Suspect]
     Active Substance: ELOTUZUMAB
     Route: 041
     Dates: start: 20200615, end: 20210722
  31. MACROGOL [Concomitant]
     Active Substance: POLYETHYLENE GLYCOLS
     Indication: CONSTIPATION PROPHYLAXIS
     Dosage: 1 BT. PRN
     Route: 048
     Dates: start: 20191205, end: 20210830
  32. ASPIRIN. [Concomitant]
     Active Substance: ASPIRIN
     Indication: THROMBOSIS PROPHYLAXIS
     Dosage: 1000 MILLIGRAM
     Route: 065
     Dates: start: 20210830, end: 20210830
  33. VITAMIN B6 [Concomitant]
     Active Substance: PYRIDOXINE HYDROCHLORIDE
     Dosage: 142.8571 IU (INTERNATIONAL UNIT)
     Route: 048
     Dates: start: 20210818, end: 20210830
  34. DIFLUCAN [Concomitant]
     Active Substance: FLUCONAZOLE
     Indication: PANCYTOPENIA
     Dosage: 500 ML OO
     Route: 048
     Dates: start: 20210823, end: 20210830
  35. PYRIDOXIN [Concomitant]
     Active Substance: PYRIDOXINE
     Indication: VITAMIN B6 DEFICIENCY
     Dosage: 20 MILLIGRAM
     Route: 048
     Dates: start: 20210901
  36. REVLIMID [Suspect]
     Active Substance: LENALIDOMIDE
     Route: 048
     Dates: start: 20200316, end: 20200531
  37. CARFILZOMIB [Suspect]
     Active Substance: CARFILZOMIB
     Route: 041
     Dates: start: 20190819, end: 20190902
  38. CARFILZOMIB [Suspect]
     Active Substance: CARFILZOMIB
     Route: 041
     Dates: start: 20200207, end: 20200526
  39. ELOTUZUMAB. [Suspect]
     Active Substance: ELOTUZUMAB
     Route: 041
     Dates: start: 20200217, end: 20200526
  40. DEXAMETHASONE. [Suspect]
     Active Substance: DEXAMETHASONE
     Dosage: 28 MILLIGRAM
     Route: 048
     Dates: start: 20190401, end: 20210722
  41. CYCLOPHOSPHAMID [Concomitant]
     Active Substance: CYCLOPHOSPHAMIDE
     Indication: PRODUCT USED FOR UNKNOWN INDICATION
     Dosage: 9320 MG 00
     Route: 041
     Dates: start: 20190628, end: 20190628
  42. GRANISETRON [Concomitant]
     Active Substance: GRANISETRON
     Indication: PROPHYLAXIS OF NAUSEA AND VOMITING
     Dosage: 1 MG QD D 1?3
     Route: 041
     Dates: start: 20210831, end: 20210902
  43. PIPERACILLIN/TAZOBACTAM [Concomitant]
     Active Substance: PIPERACILLIN SODIUM\TAZOBACTAM SODIUM
     Indication: PYREXIA
     Dosage: 4.5 GRAM
     Route: 041
     Dates: start: 20210831
  44. VITAMIN B6 [Concomitant]
     Active Substance: PYRIDOXINE HYDROCHLORIDE
     Indication: VITAMIN B6 DEFICIENCY
     Dosage: 20 MILLIGRAM
     Route: 048
     Dates: start: 20210816, end: 20210830
  45. FIBROGAMMIN [Concomitant]
     Active Substance: FACTOR XIII CONCENTRATE (HUMAN)
     Indication: FACTOR XIII DEFICIENCY
     Route: 041
     Dates: start: 20210826, end: 20210826
  46. FIBROGAMMIN [Concomitant]
     Active Substance: FACTOR XIII CONCENTRATE (HUMAN)
     Route: 041
     Dates: start: 20210831, end: 20210831
  47. CALCIUM [Concomitant]
     Active Substance: CALCIUM
     Indication: PROPHYLAXIS
     Dosage: 500 MILLIGRAM
     Route: 048
     Dates: start: 20210831
  48. REVLIMID [Suspect]
     Active Substance: LENALIDOMIDE
     Route: 048
     Dates: start: 20210520, end: 20210810
  49. DEXAMETHASONE. [Suspect]
     Active Substance: DEXAMETHASONE
     Route: 048
     Dates: start: 20190729, end: 20191014
  50. TILIDIN [Concomitant]
     Active Substance: NALOXONE HYDROCHLORIDE\TILIDINE HYDROCHLORIDE
     Indication: BACK PAIN
     Dosage: 200?0?100 MG
     Route: 048
     Dates: start: 20190409
  51. VITAMIN B12 [Concomitant]
     Active Substance: CYANOCOBALAMIN
     Dosage: 142.8571 IU (INTERNATIONAL UNIT)
     Route: 048
     Dates: start: 20210818, end: 20210830
  52. NOVALGIN [Concomitant]
     Indication: BACK PAIN
     Dosage: 40 GGT PRN
     Route: 048
     Dates: start: 20180408, end: 20210830
  53. MELPHALAN. [Concomitant]
     Active Substance: MELPHALAN
     Indication: CHEMOTHERAPY
     Dosage: 200 MILLIGRAM
     Route: 041
     Dates: start: 20191115, end: 20191116
  54. ASPIRIN. [Concomitant]
     Active Substance: ASPIRIN
     Indication: CONSTIPATION PROPHYLAXIS
     Dosage: 100 MILLIGRAM
     Route: 048
     Dates: start: 20200224, end: 20210816
  55. PARACETAMOL [Concomitant]
     Active Substance: ACETAMINOPHEN
     Indication: PYREXIA
     Dosage: 1000 MILLIGRAM
     Route: 048
     Dates: start: 20200615, end: 20200722

REACTIONS (1)
  - Acute myeloid leukaemia [Not Recovered/Not Resolved]

NARRATIVE: CASE EVENT DATE: 20210820
